FAERS Safety Report 19652613 (Version 2)
Quarter: 2021Q3

REPORT INFORMATION
  Report Type: Spontaneous
  Country: US (occurrence: US)
  Receive Date: 20210803
  Receipt Date: 20210902
  Transmission Date: 20211014
  Serious: No
  Sender: FDA-Public Use
  Company Number: US-PFIZER INC-202100924249

PATIENT
  Age: 37 Year
  Sex: Female
  Weight: 67.59 kg

DRUGS (4)
  1. DEPO?PROVERA [Suspect]
     Active Substance: MEDROXYPROGESTERONE ACETATE
     Dosage: UNK
     Dates: start: 202012, end: 20210309
  2. DEPO?PROVERA [Suspect]
     Active Substance: MEDROXYPROGESTERONE ACETATE
     Indication: MENSTRUAL CYCLE MANAGEMENT
     Dosage: UNK
     Dates: start: 202012, end: 20210309
  3. IBUPROFEN. [Concomitant]
     Active Substance: IBUPROFEN
     Dosage: UNK
  4. TYLENOL [Concomitant]
     Active Substance: ACETAMINOPHEN
     Dosage: UNK

REACTIONS (9)
  - Dysmenorrhoea [Recovering/Resolving]
  - Amenorrhoea [Unknown]
  - Off label use [Unknown]
  - Vaginal haemorrhage [Recovering/Resolving]
  - Weight increased [Not Recovered/Not Resolved]
  - Heavy menstrual bleeding [Unknown]
  - Drug ineffective for unapproved indication [Unknown]
  - Menstruation irregular [Unknown]
  - Acne cystic [Recovering/Resolving]

NARRATIVE: CASE EVENT DATE: 202012
